FAERS Safety Report 25925406 (Version 1)
Quarter: 2025Q4

REPORT INFORMATION
  Report Type: Spontaneous
  Country: US (occurrence: US)
  Receive Date: 20251015
  Receipt Date: 20251015
  Transmission Date: 20260118
  Serious: No
  Sender: SHIELD THERAPEUTICS
  Company Number: US-SHIELD THERAPEUTICS-US-STX-25-00188

PATIENT
  Age: 73 Year
  Sex: Female

DRUGS (2)
  1. ACCRUFER [Suspect]
     Active Substance: FERRIC MALTOL
     Indication: Product used for unknown indication
     Dosage: 30 MILLIGRAM, BID
     Route: 048
     Dates: start: 20250324
  2. ACCRUFER [Suspect]
     Active Substance: FERRIC MALTOL
     Dosage: 30 MILLIGRAM, EVERY OTHER DAY
     Route: 048

REACTIONS (6)
  - Abdominal discomfort [Unknown]
  - Nausea [Unknown]
  - Constipation [Unknown]
  - Diarrhoea [Unknown]
  - Vomiting [Unknown]
  - Treatment noncompliance [Unknown]
